FAERS Safety Report 8962376 (Version 1)
Quarter: 2012Q4

REPORT INFORMATION
  Report Type: Spontaneous
  Country: US (occurrence: None)
  Receive Date: 20121211
  Receipt Date: 20121211
  Transmission Date: 20130627
  Serious: Yes (Hospitalization)
  Sender: FDA-Public Use
  Company Number: None

PATIENT
  Sex: Female
  Weight: 49.7 kg

DRUGS (11)
  1. BENDAMUSTINE HYDROCHLORIDE [Suspect]
  2. RITUXIMAB (MOAB C2B8 ANTI CD20, CHIMERIC) [Suspect]
  3. ALLOPURINOL [Concomitant]
  4. AMOXICILLIN-POT CLAVULANATE (AUGMENTIN) [Concomitant]
  5. FAMCICLOVIR [Concomitant]
  6. FLUCONAZOLE [Concomitant]
  7. ONDANSETRON [Concomitant]
  8. OXYCODONE [Concomitant]
  9. PROCHLORPERAZINE MALEATE [Concomitant]
  10. SACCHAROMYCES BOULARDII (FLORASTOR) [Concomitant]
  11. SULFAMETHHOXAZOLE-TRIMETHOPRIM [Concomitant]

REACTIONS (2)
  - Bacterial infection [None]
  - Herpes virus infection [None]
